FAERS Safety Report 5385445-8 (Version None)
Quarter: 2007Q3

REPORT INFORMATION
  Report Type: 
  Country: None (occurrence: None)
  Receive Date: 20070706
  Receipt Date: 20070706
  Transmission Date: 20080115
  Serious: Yes (Life-Threatening)
  Sender: FDA-Public Use
  Company Number: None

PATIENT
  Sex: Male
  Weight: 95.709 kg

DRUGS (1)
  1. DEPAKOTE [Suspect]
     Dosage: 1750MG EVERY MORNING PO
     Route: 048

REACTIONS (1)
  - PLATELET COUNT DECREASED [None]
